FAERS Safety Report 6877064-9 (Version None)
Quarter: 2010Q3

REPORT INFORMATION
  Report Type: 
  Country: None (occurrence: None)
  Receive Date: 20100727
  Receipt Date: 20100727
  Transmission Date: 20110219
  Serious: Yes (Hospitalization)
  Sender: FDA-Public Use
  Company Number: None

PATIENT
  Age: 61 Year
  Sex: Male
  Weight: 94.8018 kg

DRUGS (1)
  1. JANUVIA [Suspect]
     Dates: start: 20070521, end: 20100225

REACTIONS (1)
  - PANCREATITIS NECROTISING [None]
